FAERS Safety Report 8484716-6 (Version None)
Quarter: 2012Q3

REPORT INFORMATION
  Report Type: 
  Country: None (occurrence: None)
  Receive Date: 20120703
  Receipt Date: 20120530
  Transmission Date: 20120928
  Serious: No
  Sender: FDA-Public Use
  Company Number: US-TEVA-340719USA

PATIENT
  Sex: Male

DRUGS (2)
  1. NUVIGIL [Suspect]
     Indication: SOMNOLENCE
  2. NUVIGIL [Suspect]
     Indication: FATIGUE
     Dosage: 300 MILLIGRAM;
     Route: 048

REACTIONS (2)
  - NERVOUSNESS [None]
  - DRUG TOLERANCE [None]
